FAERS Safety Report 12787147 (Version 1)
Quarter: 2016Q3

REPORT INFORMATION
  Report Type: Spontaneous
  Country: CH (occurrence: CH)
  Receive Date: 20160927
  Receipt Date: 20160927
  Transmission Date: 20161109
  Serious: Yes (Other)
  Sender: FDA-Public Use
  Company Number: CH-BEH-2016071120

PATIENT
  Age: 53 Year
  Weight: 75 kg

DRUGS (2)
  1. PRIVIGEN [Suspect]
     Active Substance: HUMAN IMMUNOGLOBULIN G
     Dosage: 350 ML, 3 DAYS A WEEK (AFTER 18 DAYS NEXT CYCLE)
     Route: 065
  2. PRIVIGEN [Suspect]
     Active Substance: HUMAN IMMUNOGLOBULIN G
     Indication: CHRONIC INFLAMMATORY DEMYELINATING POLYRADICULONEUROPATHY
     Dosage: 300 ML, 5 DAYS A WEEK (6 CYCLES) (AFTER 25 DAYS NEXT CYCLE)
     Route: 065
     Dates: start: 201510

REACTIONS (2)
  - Drug effect incomplete [Unknown]
  - Sensorimotor disorder [Unknown]
